FAERS Safety Report 4698374-X (Version None)
Quarter: 2005Q2

REPORT INFORMATION
  Report Type: 
  Country: None (occurrence: None)
  Receive Date: 20050621
  Receipt Date: 20050607
  Transmission Date: 20051028
  Serious: Yes (Other)
  Sender: FDA-Public Use
  Company Number: 200511809GDS

PATIENT
  Sex: Female
  Weight: 63 kg

DRUGS (1)
  1. AVELOX [Suspect]
     Indication: SINUSITIS
     Dosage: 400 MG, QD, ORAL
     Route: 048

REACTIONS (2)
  - BLOOD PRESSURE ORTHOSTATIC ABNORMAL [None]
  - HYPOTENSION [None]
